FAERS Safety Report 18984697 (Version 1)
Quarter: 2021Q1

REPORT INFORMATION
  Report Type: Report from Study
  Country: None (occurrence: GR)
  Receive Date: 20210308
  Receipt Date: 20210308
  Transmission Date: 20210420
  Serious: Yes (Hospitalization)
  Sender: FDA-Public Use
  Company Number: US-ABBVIE-21K-163-3799899-00

PATIENT
  Age: 19 Year
  Sex: Male

DRUGS (2)
  1. ADALIMUMAB [Suspect]
     Active Substance: ADALIMUMAB
     Indication: CROHN^S DISEASE
     Route: 058
  2. PREDNISONE. [Suspect]
     Active Substance: PREDNISONE
     Indication: CROHN^S DISEASE
     Route: 065

REACTIONS (12)
  - Fluid replacement [Unknown]
  - Malaise [Unknown]
  - Tachycardia [Unknown]
  - Unevaluable event [Unknown]
  - Pyrexia [Unknown]
  - Chest pain [Unknown]
  - Pharyngitis [Unknown]
  - Abnormal loss of weight [Unknown]
  - Night sweats [Unknown]
  - Pain in extremity [Unknown]
  - Mouth ulceration [Unknown]
  - Oropharyngeal pain [Unknown]
